FAERS Safety Report 12681601 (Version 3)
Quarter: 2016Q3

REPORT INFORMATION
  Report Type: Spontaneous
  Country: FR (occurrence: FR)
  Receive Date: 20160824
  Receipt Date: 20160929
  Transmission Date: 20161109
  Serious: Yes (Other)
  Sender: FDA-Public Use
  Company Number: FR-TEVA-684792ROM

PATIENT
  Sex: Male
  Weight: 117 kg

DRUGS (2)
  1. HYDROCHLOROTHIAZIDE. [Suspect]
     Active Substance: HYDROCHLOROTHIAZIDE
     Route: 065
  2. DICLOFENAC TEVA 1% [Suspect]
     Active Substance: DICLOFENAC
     Indication: VARICOSE ULCERATION
     Dosage: 2 DOSAGE FORMS DAILY;
     Route: 003
     Dates: start: 201509, end: 201509

REACTIONS (9)
  - Erythema [Unknown]
  - Pruritus [Unknown]
  - Drug eruption [Unknown]
  - Photosensitivity reaction [Unknown]
  - Off label use [Unknown]
  - Dermatosis [Unknown]
  - Systemic lupus erythematosus [Unknown]
  - Photodermatosis [Recovered/Resolved]
  - Application site papules [Unknown]
